FAERS Safety Report 24565009 (Version 5)
Quarter: 2024Q4

REPORT INFORMATION
  Report Type: Spontaneous
  Country: US (occurrence: US)
  Receive Date: 20241030
  Receipt Date: 20241231
  Transmission Date: 20250115
  Serious: No
  Sender: PFIZER
  Company Number: US-PFIZER INC-202400282478

PATIENT
  Age: 19 Year
  Sex: Female
  Weight: 72.57 kg

DRUGS (1)
  1. GENOTROPIN [Suspect]
     Active Substance: SOMATROPIN
     Indication: Blood growth hormone
     Dosage: NIGHTLY, 2ML, SHE THINKS
     Dates: start: 202405

REACTIONS (4)
  - Device mechanical issue [Unknown]
  - Device material issue [Unknown]
  - Device leakage [Unknown]
  - Drug dose omission by device [Unknown]

NARRATIVE: CASE EVENT DATE: 20241020
